FAERS Safety Report 9069692 (Version 2)
Quarter: 2013Q2

REPORT INFORMATION
  Report Type: Report from Study
  Country: DE (occurrence: DE)
  Receive Date: 20130215
  Receipt Date: 20130529
  Transmission Date: 20140414
  Serious: Yes (Other)
  Sender: FDA-Public Use
  Company Number: DE-OTSUKA-EU-2011-10244

PATIENT
  Sex: Female
  Weight: 55 kg

DRUGS (14)
  1. SAMSCA [Suspect]
     Indication: HYPONATRAEMIA
     Dosage: 7.5 MG MILLIGRAM(S), DAILY DOSE
     Route: 048
     Dates: start: 20110512, end: 20110517
  2. SAMSCA [Suspect]
     Indication: INAPPROPRIATE ANTIDIURETIC HORMONE SECRETION
     Dosage: 7.5 MG MILLIGRAM(S), QOD
     Route: 048
     Dates: start: 20110518
  3. METOPROLOL [Concomitant]
     Indication: HYPERTENSION
     Dosage: 95 MG MILLIGRAM(S), DAILY DOSE
     Route: 048
  4. AMLODIPINE [Concomitant]
     Indication: HYPERTENSION
     Dosage: 5 MG MILLIGRAM(S), DAILY DOSE
     Route: 048
     Dates: start: 20110510
  5. GLIQUIDONE [Concomitant]
     Indication: HYPERGLYCAEMIA
     Dosage: 15 MG MILLIGRAM(S), DAILY DOSE
     Route: 048
     Dates: start: 20110513
  6. CEFTRIAXONE [Concomitant]
     Indication: URINARY TRACT INFECTION
     Dosage: 2 G GRAM(S), DAILY DOSE
     Route: 042
     Dates: start: 20110512
  7. ACETYLCYSTEINE [Concomitant]
     Indication: PROPHYLAXIS
     Dosage: 2400 MG MILLIGRAM(S), DAILY DOSE
     Route: 042
     Dates: start: 20110512, end: 20110512
  8. ACETYLCYSTEINE [Concomitant]
     Indication: RENAL FAILURE
  9. DALTEPARIN [Concomitant]
     Indication: THROMBOSIS PROPHYLAXIS
     Dosage: 5000 IU, DAILY DOSE
     Route: 058
     Dates: start: 20110510
  10. RINGER LACTATE [Concomitant]
     Indication: HYPOVOLAEMIA
     Dosage: 1000 ML MILLILITRE(S), DAILY DOSE
     Route: 042
     Dates: start: 20110509, end: 20110510
  11. RINGER LACTATE [Concomitant]
     Dosage: 1200 ML MILLILITRE(S), DAILY DOSE
     Route: 042
     Dates: start: 20110510, end: 20110511
  12. RINGER LACTATE [Concomitant]
     Dosage: 600 ML MILLILITRE(S), DAILY DOSE
     Route: 042
     Dates: start: 20110511, end: 20110512
  13. CIPROFLOXACIN [Concomitant]
     Indication: URINARY TRACT INFECTION
     Dosage: 250 MG MILLIGRAM(S), DAILY DOSE
     Route: 048
     Dates: start: 20110512, end: 20110516
  14. SALINE [Concomitant]
     Dosage: 308 MMOL MILLIMOLE(S), UNKNOWN
     Route: 065
     Dates: start: 20110512

REACTIONS (5)
  - Duodenal ulcer [Recovering/Resolving]
  - Gastrointestinal haemorrhage [Recovered/Resolved]
  - Pyrexia [Recovered/Resolved]
  - Hypokalaemia [Recovered/Resolved]
  - Wrong technique in drug usage process [Unknown]
